FAERS Safety Report 9023178 (Version 1)
Quarter: 2013Q1

REPORT INFORMATION
  Report Type: Spontaneous
  Country: US (occurrence: US)
  Receive Date: 20130120
  Receipt Date: 20130120
  Transmission Date: 20140127
  Serious: No
  Sender: FDA-Public Use
  Company Number: US-ALLERGAN-1214723US

PATIENT
  Sex: Female

DRUGS (15)
  1. BOTOX COSMETIC [Suspect]
     Indication: SKIN WRINKLING
     Dosage: 19 UNITS, SINGLE
     Route: 030
     Dates: start: 20121009, end: 20121009
  2. BOTOX COSMETIC [Suspect]
     Indication: SKIN WRINKLING
  3. PROGRAF [Concomitant]
     Indication: PRODUCT USED FOR UNKNOWN INDICATION
     Dosage: UNK
  4. PROTONIX                           /01263201/ [Concomitant]
     Indication: GASTROOESOPHAGEAL REFLUX DISEASE
     Dosage: UNK
  5. LEVOTHYROXINE [Concomitant]
     Indication: HYPOTHYROIDISM
     Dosage: UNK
  6. LIOTHYRONINE [Concomitant]
     Indication: HYPOTHYROIDISM
     Dosage: UNK
  7. AMLODIPINE [Concomitant]
     Indication: HYPERTENSION
     Dosage: UNK
  8. ASA [Concomitant]
     Indication: PRODUCT USED FOR UNKNOWN INDICATION
     Dosage: UNK
  9. MAGNESIUM [Concomitant]
     Indication: SUPPLEMENTATION THERAPY
     Dosage: UNK
  10. ESTROGEN [Concomitant]
     Indication: HORMONE REPLACEMENT THERAPY
     Dosage: UNK
  11. DHEA [Concomitant]
     Indication: HORMONE REPLACEMENT THERAPY
     Dosage: UNK
  12. ESTRADIOL [Concomitant]
     Indication: HORMONE REPLACEMENT THERAPY
     Dosage: UNK
  13. VIT D [Concomitant]
     Indication: SUPPLEMENTATION THERAPY
     Dosage: UNK
  14. OXYBUTYNIN [Concomitant]
     Indication: URINARY INCONTINENCE
     Dosage: UNK
  15. GLYBURIDE [Concomitant]
     Indication: DIABETES MELLITUS
     Dosage: UNK

REACTIONS (2)
  - Wrong technique in drug usage process [Unknown]
  - Drug ineffective [Unknown]
